FAERS Safety Report 10249757 (Version 2)
Quarter: 2015Q2

REPORT INFORMATION
  Report Type: Spontaneous
  Country: US (occurrence: US)
  Receive Date: 20140620
  Receipt Date: 20150403
  Transmission Date: 20150821
  Serious: Yes (Death, Life-Threatening, Hospitalization, Other)
  Sender: FDA-Public Use
  Company Number: US-MERCK-1406USA009633

PATIENT
  Sex: Male
  Weight: 100.4 kg

DRUGS (1)
  1. JANUVIA [Suspect]
     Active Substance: SITAGLIPTIN PHOSPHATE
     Indication: TYPE 2 DIABETES MELLITUS
     Dosage: 100 MG, QD
     Route: 048
     Dates: start: 20080929, end: 20121025

REACTIONS (6)
  - Abnormal loss of weight [Unknown]
  - Diabetic gastroparesis [Unknown]
  - Pancreatic stent placement [Unknown]
  - Hypertension [Unknown]
  - Pancreatic carcinoma [Fatal]
  - Pancreatic stent placement [Unknown]

NARRATIVE: CASE EVENT DATE: 2011
